FAERS Safety Report 5066223-6 (Version None)
Quarter: 2006Q3

REPORT INFORMATION
  Report Type: 
  Country: None (occurrence: None)
  Receive Date: 20060801
  Receipt Date: 20060720
  Transmission Date: 20061208
  Serious: Yes (Hospitalization)
  Sender: FDA-Public Use
  Company Number: US-JNJFOC-20060704305

PATIENT
  Sex: Male

DRUGS (13)
  1. REMICADE [Suspect]
     Indication: RHEUMATOID ARTHRITIS
     Route: 042
  2. CELEBREX [Concomitant]
  3. FOLIC ACID [Concomitant]
  4. PLAVIX [Concomitant]
  5. INDERAL [Concomitant]
  6. LIPITOR [Concomitant]
  7. ASPIRIN [Concomitant]
  8. MECLIZINE [Concomitant]
  9. ENTEX CAP [Concomitant]
  10. PRILOSEC [Concomitant]
  11. GLUCOSAMINE [Concomitant]
  12. ADVIL [Concomitant]
  13. METHOTREXATE [Concomitant]

REACTIONS (1)
  - CORONARY ARTERY DISEASE [None]
